FAERS Safety Report 14104888 (Version 2)
Quarter: 2017Q4

REPORT INFORMATION
  Report Type: Spontaneous
  Country: IE (occurrence: IE)
  Receive Date: 20171018
  Receipt Date: 20171113
  Transmission Date: 20180321
  Serious: Yes (Hospitalization, Other)
  Sender: FDA-Public Use
  Company Number: IE-BAYER-2017-193703

PATIENT
  Age: 25 Year
  Sex: Female

DRUGS (1)
  1. JAYDESS [Suspect]
     Active Substance: LEVONORGESTREL
     Indication: DYSMENORRHOEA
     Dosage: 14 MCG/24HR, CONT
     Route: 015
     Dates: start: 20170104, end: 20170717

REACTIONS (24)
  - Device use issue [None]
  - Off label use of device [None]
  - Discomfort [None]
  - Cerebral disorder [None]
  - Dyspnoea [None]
  - Gait disturbance [None]
  - Neurological symptom [Recovering/Resolving]
  - Malaise [Recovered/Resolved with Sequelae]
  - Migraine [None]
  - Head discomfort [Not Recovered/Not Resolved]
  - Fatigue [None]
  - Hemiplegic migraine [Recovered/Resolved with Sequelae]
  - Menstruation delayed [None]
  - Asthenia [None]
  - Chest discomfort [Not Recovered/Not Resolved]
  - Myoclonus [Not Recovered/Not Resolved]
  - Visual impairment [None]
  - Hemianaesthesia [None]
  - Dizziness [None]
  - Feeling jittery [None]
  - Formication [None]
  - Headache [Not Recovered/Not Resolved]
  - Vision blurred [Recovering/Resolving]
  - Paraesthesia [None]

NARRATIVE: CASE EVENT DATE: 201705
